FAERS Safety Report 18229973 (Version 1)
Quarter: 2020Q3

REPORT INFORMATION
  Report Type: Spontaneous
  Country: IL (occurrence: IL)
  Receive Date: 20200903
  Receipt Date: 20200903
  Transmission Date: 20201103
  Serious: Yes (Other)
  Sender: FDA-Public Use
  Company Number: IL-BRISTOL-MYERS SQUIBB COMPANY-BMS-2020-069740

PATIENT
  Age: 8 Decade
  Sex: Male

DRUGS (2)
  1. NIVOLUMAB [Suspect]
     Active Substance: NIVOLUMAB
     Indication: NEUROENDOCRINE TUMOUR OF THE LUNG
     Dosage: UNK UNK, Q3WK
     Route: 065
  2. IPILIMUMAB [Suspect]
     Active Substance: IPILIMUMAB
     Indication: NEUROENDOCRINE TUMOUR OF THE LUNG
     Dosage: UNK, Q3WK
     Route: 065

REACTIONS (5)
  - Rash [Recovered/Resolved]
  - Sjogren^s syndrome [Unknown]
  - Hepatitis [Recovered/Resolved]
  - Colitis [Recovered/Resolved]
  - Intentional product use issue [Unknown]
